FAERS Safety Report 20567826 (Version 1)
Quarter: 2022Q1

REPORT INFORMATION
  Report Type: Spontaneous
  Country: US (occurrence: None)
  Receive Date: 20220308
  Receipt Date: 20220308
  Transmission Date: 20220423
  Serious: No
  Sender: FDA-Public Use
  Company Number: None

PATIENT
  Sex: Male

DRUGS (1)
  1. EMGALITY [Suspect]
     Active Substance: GALCANEZUMAB-GNLM
     Dosage: OTHER FREQUENCY : MONTHLY;?
     Route: 058
     Dates: start: 20211201

REACTIONS (3)
  - Visual impairment [None]
  - Cognitive disorder [None]
  - Mental status changes [None]
